FAERS Safety Report 9178126 (Version 1)
Quarter: 2012Q4

REPORT INFORMATION
  Report Type: 
  Country: US (occurrence: US)
  Receive Date: 20121022
  Receipt Date: 20121022
  Transmission Date: 20130627
  Serious: Yes (Hospitalization, Other)
  Sender: FDA-Public Use
  Company Number: US-RB-045769-12

PATIENT
  Age: 50 Year
  Sex: Female

DRUGS (7)
  1. XANAX [Concomitant]
     Indication: ANXIETY
     Dosage: Dosing details unknwon
     Route: 065
  2. FUROSEMIDE [Concomitant]
     Indication: FLUID RETENTION
     Dosage: Dosing details unknown
     Route: 065
  3. TRAZADONE [Concomitant]
     Indication: ANXIETY
     Dosage: Dosing details unknown
     Route: 065
  4. TRAZADONE [Concomitant]
     Indication: BIPOLAR DISORDER
     Dosage: Dosing details unknown
     Route: 065
  5. DAPSONE [Concomitant]
     Indication: PNEUMONIA
     Dosage: Dosing details unknown
     Route: 065
  6. SUBOXONE FILM [Suspect]
     Indication: DRUG DEPENDENCE
     Dosage: Suboxone film
     Route: 060
     Dates: start: 2011
  7. XANAX [Concomitant]
     Indication: ANXIETY
     Dosage: Dosing details unknwon
     Route: 065

REACTIONS (7)
  - Herpes zoster [Recovering/Resolving]
  - Pain [Recovering/Resolving]
  - Therapeutic response unexpected [Recovered/Resolved]
  - Psychomotor hyperactivity [Unknown]
  - Dizziness [Recovered/Resolved]
  - Fall [Recovered/Resolved]
  - Infection [Unknown]
